FAERS Safety Report 5926316-5 (Version None)
Quarter: 2008Q4

REPORT INFORMATION
  Report Type: 
  Country: None (occurrence: None)
  Receive Date: 20081017
  Receipt Date: 20081008
  Transmission Date: 20090506
  Serious: Yes (Death, Hospitalization)
  Sender: FDA-Public Use
  Company Number: 2008SP019617

PATIENT
  Age: 57 Year
  Sex: Male
  Weight: 59.4 kg

DRUGS (3)
  1. TEMODAL [Suspect]
     Indication: GLIOBLASTOMA
     Dosage: 75 MG/M2;QD;PO
     Route: 048
     Dates: start: 20080512, end: 20080605
  2. DEXAMETHASONE 4MG TAB [Concomitant]
  3. METOCLOPRAMID [Concomitant]

REACTIONS (5)
  - BLOOD PRODUCT TRANSFUSION DEPENDENT [None]
  - BONE MARROW FAILURE [None]
  - CONDITION AGGRAVATED [None]
  - FEBRILE NEUTROPENIA [None]
  - STAPHYLOCOCCAL SEPSIS [None]
